FAERS Safety Report 4454346-1 (Version None)
Quarter: 2004Q3

REPORT INFORMATION
  Report Type: 
  Country: None (occurrence: None)
  Receive Date: 20040917
  Receipt Date: 20040917
  Transmission Date: 20050211
  Serious: Yes (Other)
  Sender: FDA-Public Use
  Company Number: None

PATIENT
  Age: 37 Year
  Sex: Female
  Weight: 57.6068 kg

DRUGS (5)
  1. VERAPAMIL [Suspect]
     Indication: HYPERTENSION
     Dosage: 240MG  TWICE QD PO
     Route: 048
     Dates: start: 19910319, end: 19911104
  2. LO-TROL [Concomitant]
  3. ELAVIL [Concomitant]
  4. CATAPRES-TTS-1 [Concomitant]
  5. BUSPAR [Concomitant]

REACTIONS (4)
  - OEDEMA PERIPHERAL [None]
  - PAIN IN EXTREMITY [None]
  - PHARMACEUTICAL PRODUCT COMPLAINT [None]
  - RASH [None]
